FAERS Safety Report 5196368-1 (Version None)
Quarter: 2006Q4

REPORT INFORMATION
  Report Type: 
  Country: None (occurrence: None)
  Receive Date: 20061222
  Receipt Date: 20061207
  Transmission Date: 20070319
  Serious: Yes (Other)
  Sender: FDA-Public Use
  Company Number: DISCN-06-0601

PATIENT
  Age: 27 Year
  Weight: 65 kg

DRUGS (1)
  1. DIPRIVAN [Suspect]
     Indication: GENERAL ANAESTHESIA
     Dosage: 110 MG
     Dates: start: 20061109, end: 20061109

REACTIONS (10)
  - ASTHENIA [None]
  - COLD SWEAT [None]
  - HYPERHIDROSIS [None]
  - LISTLESS [None]
  - PALLOR [None]
  - POST PROCEDURAL COMPLICATION [None]
  - PROCEDURAL COMPLICATION [None]
  - UTERINE HYPOTONUS [None]
  - VAGUS NERVE DISORDER [None]
  - VOMITING [None]
